FAERS Safety Report 10229817 (Version 1)
Quarter: 2014Q2

REPORT INFORMATION
  Report Type: Spontaneous
  Country: ES (occurrence: ES)
  Receive Date: 20140611
  Receipt Date: 20140611
  Transmission Date: 20141212
  Serious: Yes (Other)
  Sender: FDA-Public Use
  Company Number: ES-BAYER-2014-082140

PATIENT
  Age: 35 Year
  Sex: Female
  Weight: 90 kg

DRUGS (1)
  1. GADOVIST [Suspect]
     Dosage: 9 ML, UNK
     Route: 042

REACTIONS (5)
  - Throat irritation [Recovered/Resolved]
  - Vomiting [Recovered/Resolved]
  - Eye pruritus [Recovered/Resolved]
  - Lacrimation increased [Recovered/Resolved]
  - Rash [Recovered/Resolved]
